FAERS Safety Report 19645856 (Version 1)
Quarter: 2021Q3

REPORT INFORMATION
  Report Type: Spontaneous
  Country: US (occurrence: US)
  Receive Date: 20210730
  Receipt Date: 20210730
  Transmission Date: 20211014
  Serious: No
  Sender: FDA-Public Use
  Company Number: None

PATIENT
  Age: 62 Year
  Sex: Male

DRUGS (1)
  1. CYCLOPHOSPHAMIDE CAP 50MG [Suspect]
     Active Substance: CYCLOPHOSPHAMIDE
     Indication: LEUKAEMIA
     Route: 048
     Dates: start: 202104

REACTIONS (4)
  - Immunodeficiency [None]
  - Therapy interrupted [None]
  - Arthropod bite [None]
  - Condition aggravated [None]

NARRATIVE: CASE EVENT DATE: 20210730
